FAERS Safety Report 25470015 (Version 6)
Quarter: 2025Q3

REPORT INFORMATION
  Report Type: Report from Study
  Country: US (occurrence: US)
  Receive Date: 20250623
  Receipt Date: 20250929
  Transmission Date: 20251020
  Serious: Yes (Hospitalization, Other)
  Sender: MALLINCKRODT
  Company Number: US-MALLINCKRODT-MNK202501738

PATIENT
  Age: 44 Year
  Sex: Female

DRUGS (5)
  1. CORTICOTROPIN [Suspect]
     Active Substance: CORTICOTROPIN
     Indication: Systemic lupus erythematosus
     Route: 058
     Dates: start: 20241001
  2. CORTICOTROPIN [Suspect]
     Active Substance: CORTICOTROPIN
     Dosage: 80 UNITS
     Route: 058
  3. CORTICOTROPIN [Suspect]
     Active Substance: CORTICOTROPIN
     Route: 058
  4. CORTICOTROPIN [Suspect]
     Active Substance: CORTICOTROPIN
  5. CORTICOTROPIN [Suspect]
     Active Substance: CORTICOTROPIN
     Dosage: UNKNOWN

REACTIONS (7)
  - Diabetes mellitus [Unknown]
  - Hip arthroplasty [Unknown]
  - Systemic lupus erythematosus [Recovering/Resolving]
  - Hypotension [Not Recovered/Not Resolved]
  - Myoclonus [Unknown]
  - Fibromyalgia [Unknown]
  - Stress [Unknown]

NARRATIVE: CASE EVENT DATE: 20250101
